FAERS Safety Report 10028658 (Version 2)
Quarter: 2014Q2

REPORT INFORMATION
  Report Type: Spontaneous
  Country: JP (occurrence: JP)
  Receive Date: 20140321
  Receipt Date: 20140423
  Transmission Date: 20141212
  Serious: Yes (Hospitalization)
  Sender: FDA-Public Use
  Company Number: JP-GLAXOSMITHKLINE-B0976551A

PATIENT
  Age: 24 Year
  Sex: Female

DRUGS (3)
  1. LAMICTAL [Suspect]
     Indication: EPILEPSY
     Dosage: 25MG ALTERNATE DAYS
     Route: 048
     Dates: start: 20140222, end: 20140306
  2. DEPAKENE-R [Suspect]
     Indication: EPILEPSY
     Route: 048
     Dates: start: 200712, end: 20140220
  3. DEPAKENE-R [Suspect]
     Indication: EPILEPSY
     Dosage: 400MG PER DAY
     Route: 048
     Dates: start: 20140221

REACTIONS (14)
  - Stevens-Johnson syndrome [Recovering/Resolving]
  - Vasculitis necrotising [Unknown]
  - White blood cell count decreased [Recovered/Resolved]
  - Ocular hyperaemia [Unknown]
  - Erythema of eyelid [Unknown]
  - Conjunctival hyperaemia [Unknown]
  - Lip erosion [Recovering/Resolving]
  - Oral mucosa erosion [Recovering/Resolving]
  - Scab [Recovering/Resolving]
  - Generalised erythema [Recovering/Resolving]
  - Hyperthermia [Recovered/Resolved]
  - Pyrexia [Recovered/Resolved]
  - Lymphadenopathy [Unknown]
  - Drug eruption [Recovering/Resolving]
